FAERS Safety Report 12695021 (Version 1)
Quarter: 2016Q3

REPORT INFORMATION
  Report Type: Spontaneous
  Country: US (occurrence: US)
  Receive Date: 20160829
  Receipt Date: 20160829
  Transmission Date: 20161109
  Serious: Yes (Other)
  Sender: FDA-Public Use
  Company Number: US-FERRINGPH-2016FE04259

PATIENT

DRUGS (1)
  1. PREPOPIK [Suspect]
     Active Substance: ANHYDROUS CITRIC ACID\MAGNESIUM OXIDE\SODIUM PICOSULFATE
     Indication: BOWEL PREPARATION
     Dosage: 2 SACHETS
     Route: 048
     Dates: start: 20160605, end: 20160605

REACTIONS (8)
  - Hypoaesthesia [Unknown]
  - Dehydration [Unknown]
  - Abdominal pain [Unknown]
  - Blood pressure decreased [Unknown]
  - Retching [Unknown]
  - Nausea [Unknown]
  - Paralysis [Unknown]
  - Gastrointestinal pain [Unknown]

NARRATIVE: CASE EVENT DATE: 20160605
